FAERS Safety Report 17800459 (Version 3)
Quarter: 2020Q3

REPORT INFORMATION
  Report Type: Report from Study
  Country: CO (occurrence: CO)
  Receive Date: 20200518
  Receipt Date: 20200924
  Transmission Date: 20201102
  Serious: Yes (Hospitalization, Other)
  Sender: FDA-Public Use
  Company Number: PHHY2018CO187605

PATIENT
  Sex: Male

DRUGS (4)
  1. TASIGNA [Suspect]
     Active Substance: NILOTINIB
     Dosage: 300 MG, Q12H
     Route: 048
     Dates: start: 20200706
  2. TASIGNA [Suspect]
     Active Substance: NILOTINIB
     Dosage: 300 MG, Q12H
     Route: 048
  3. TASIGNA [Suspect]
     Active Substance: NILOTINIB
     Dosage: 300 MG, Q12H
     Route: 048
  4. TASIGNA [Suspect]
     Active Substance: NILOTINIB
     Indication: CHRONIC MYELOID LEUKAEMIA
     Dosage: 600 MG, QD
     Route: 048

REACTIONS (10)
  - Throat irritation [Recovered/Resolved]
  - Cough [Recovered/Resolved]
  - Inappropriate schedule of product administration [Unknown]
  - Gait inability [Unknown]
  - Hypersensitivity [Unknown]
  - COVID-19 [Unknown]
  - Gastritis [Unknown]
  - Pain in extremity [Unknown]
  - Arthralgia [Unknown]
  - Asphyxia [Unknown]
